FAERS Safety Report 9914484 (Version 2)
Quarter: 2017Q3

REPORT INFORMATION
  Report Type: Spontaneous
  Country: SE (occurrence: SE)
  Receive Date: 20140220
  Receipt Date: 20170811
  Transmission Date: 20171128
  Serious: Yes (Hospitalization)
  Sender: FDA-Public Use
  Company Number: SE-PFIZER INC-2014045523

PATIENT
  Age: 67 Year
  Sex: Female

DRUGS (1)
  1. DIFLUCAN [Suspect]
     Active Substance: FLUCONAZOLE
     Indication: GASTRIC INFECTION
     Dosage: 50 MG, 2X/DAY

REACTIONS (4)
  - Headache [Recovered/Resolved]
  - Hepatic neoplasm [Recovered/Resolved]
  - Pruritus [Unknown]
  - Pharyngeal oedema [Unknown]
